FAERS Safety Report 7271607-1 (Version None)
Quarter: 2011Q1

REPORT INFORMATION
  Report Type: 
  Country: None (occurrence: None)
  Receive Date: 20110125
  Receipt Date: 20110125
  Transmission Date: 20110831
  Serious: Yes (Hospitalization)
  Sender: FDA-Public Use
  Company Number: None

PATIENT
  Age: 81 Year
  Sex: Male

DRUGS (2)
  1. ARANESP [Suspect]
     Indication: RENAL FAILURE CHRONIC
     Dosage: INJECT 200MCG UNDER THE SKIN EVERY 2 WEEKS
  2. ARANESP [Suspect]
     Indication: ANAEMIA
     Dosage: INJECT 200MCG UNDER THE SKIN EVERY 2 WEEKS

REACTIONS (1)
  - LUNG INFECTION [None]
